FAERS Safety Report 7277246-0 (Version None)
Quarter: 2011Q1

REPORT INFORMATION
  Report Type: 
  Country: None (occurrence: None)
  Receive Date: 20110202
  Receipt Date: 20110202
  Transmission Date: 20110831
  Serious: Yes (Other)
  Sender: FDA-Public Use
  Company Number: None

PATIENT
  Age: 50 Year
  Sex: Male
  Weight: 80.2867 kg

DRUGS (1)
  1. ISOSORBIDE ME ER 30MG WEST WARDIN.INC [Suspect]
     Indication: CARDIAC DISORDER
     Dosage: 30MG 1 TIME ADAY PO
     Route: 048
     Dates: start: 20101228, end: 20110130

REACTIONS (6)
  - NECK PAIN [None]
  - MUSCULOSKELETAL PAIN [None]
  - MUSCLE SPASMS [None]
  - MYALGIA [None]
  - MOVEMENT DISORDER [None]
  - PAIN IN EXTREMITY [None]
